FAERS Safety Report 9781656 (Version 3)
Quarter: 2014Q1

REPORT INFORMATION
  Report Type: Spontaneous
  Country: CH (occurrence: CH)
  Receive Date: 20131224
  Receipt Date: 20140124
  Transmission Date: 20141002
  Serious: Yes (Other)
  Sender: FDA-Public Use
  Company Number: CH-GILEAD-2013-0090113

PATIENT
  Age: 66 Year
  Sex: Male
  Weight: 67 kg

DRUGS (3)
  1. TRUVADA [Suspect]
     Indication: HIV INFECTION
     Dosage: 445 MG, QD
     Route: 048
     Dates: start: 200703
  2. KALETRA [Suspect]
     Indication: HIV INFECTION
     Dosage: 500 MG, BID
     Route: 048
     Dates: start: 200703
  3. ADCETRIS [Suspect]
     Indication: NON-HODGKIN^S LYMPHOMA
     Dosage: 120 MG, UNK
     Route: 042
     Dates: start: 20131031, end: 20131031

REACTIONS (9)
  - Bicytopenia [Recovering/Resolving]
  - Anaemia [Not Recovered/Not Resolved]
  - Leukopenia [Recovered/Resolved]
  - Hyponatraemia [Not Recovered/Not Resolved]
  - Hypokalaemia [Recovering/Resolving]
  - Constipation [Recovering/Resolving]
  - Chest pain [Recovering/Resolving]
  - Abdominal pain upper [Recovering/Resolving]
  - Neutropenia [Recovering/Resolving]
